FAERS Safety Report 8046178 (Version 7)
Quarter: 2013Q4

REPORT INFORMATION
  Report Type: Report from Study
  Country: JP (occurrence: JP)
  Receive Date: 20110720
  Receipt Date: 20131015
  Transmission Date: 20140711
  Serious: Yes (Hospitalization)
  Sender: FDA-Public Use
  Company Number: JP-ROCHE-GNE321391

PATIENT
  Age: 59 Year
  Sex: Female
  Weight: 51 kg

DRUGS (14)
  1. RANIBIZUMAB [Suspect]
     Indication: AGE-RELATED MACULAR DEGENERATION
     Dosage: REGIMEN: 1
     Route: 050
     Dates: start: 20090807
  2. RANIBIZUMAB [Suspect]
     Indication: CHOROIDAL NEOVASCULARISATION
     Dosage: REGIMEN: 2
     Route: 050
     Dates: start: 20091002
  3. RANIBIZUMAB [Suspect]
     Dosage: REGIMEN: 3
     Route: 050
     Dates: start: 20091110
  4. RANIBIZUMAB [Suspect]
     Dosage: REGIMEN 4
     Route: 050
     Dates: start: 201103
  5. RANIBIZUMAB [Suspect]
     Dosage: REGIMEN;5
     Route: 050
     Dates: start: 201104
  6. RANIBIZUMAB [Suspect]
     Dosage: REGIMEN;6
     Route: 050
     Dates: start: 201105
  7. CRAVIT [Concomitant]
     Route: 065
     Dates: start: 200908, end: 20101213
  8. PITAVASTATIN CALCIUM [Concomitant]
     Route: 065
     Dates: start: 201009
  9. FOSAMAX [Concomitant]
  10. CRESTOR [Concomitant]
     Route: 065
     Dates: start: 201009
  11. ZETIA [Concomitant]
     Route: 065
     Dates: start: 201009
  12. TIMOPTIC-XE [Concomitant]
     Route: 065
     Dates: start: 20100919, end: 20101012
  13. RINDERON [Concomitant]
     Route: 065
     Dates: start: 20100911, end: 20101011
  14. DICLOD [Concomitant]
     Route: 065
     Dates: start: 20100911, end: 20100920

REACTIONS (3)
  - Herpes zoster [Recovering/Resolving]
  - Macular pseudohole [Recovering/Resolving]
  - Macular fibrosis [Recovering/Resolving]
